FAERS Safety Report 14615946 (Version 5)
Quarter: 2018Q3

REPORT INFORMATION
  Report Type: Report from Study
  Country: None (occurrence: US)
  Receive Date: 20180309
  Receipt Date: 20180906
  Transmission Date: 20181010
  Serious: Yes (Other)
  Sender: FDA-Public Use
  Company Number: US-ABBVIE-17K-163-2191693-00

PATIENT
  Age: 65 Year
  Sex: Male

DRUGS (2)
  1. HUMIRA [Suspect]
     Active Substance: ADALIMUMAB
     Route: 058
  2. HUMIRA [Suspect]
     Active Substance: ADALIMUMAB
     Indication: ANKYLOSING SPONDYLITIS
     Route: 058
     Dates: start: 20170802

REACTIONS (13)
  - Dyspepsia [Unknown]
  - Iron deficiency [Unknown]
  - Ankylosing spondylitis [Unknown]
  - Diarrhoea [Unknown]
  - Balance disorder [Unknown]
  - Benign prostatic hyperplasia [Unknown]
  - Abdominal pain lower [Unknown]
  - Fibromyalgia [Unknown]
  - Depression [Unknown]
  - Pain [Not Recovered/Not Resolved]
  - Systemic lupus erythematosus [Unknown]
  - Influenza [Unknown]
  - Gait disturbance [Unknown]

NARRATIVE: CASE EVENT DATE: 201711
